FAERS Safety Report 4884285-3 (Version None)
Quarter: 2005Q4

REPORT INFORMATION
  Report Type: 
  Country: None (occurrence: None)
  Receive Date: 20051201
  Receipt Date: 20050906
  Transmission Date: 20060501
  Serious: No
  Sender: FDA-Public Use
  Company Number: 2005PV001706

PATIENT
  Age: 70 Year
  Sex: Female
  Weight: 95.709 kg

DRUGS (6)
  1. BYETTA [Suspect]
     Indication: DIABETES MELLITUS NON-INSULIN-DEPENDENT
     Dosage: 10 MCG;BID;SC    5 MCG;BID;SC
     Route: 058
     Dates: start: 20050801, end: 20050831
  2. BYETTA [Suspect]
     Indication: DIABETES MELLITUS NON-INSULIN-DEPENDENT
     Dosage: 10 MCG;BID;SC    5 MCG;BID;SC
     Route: 058
     Dates: start: 20050901
  3. NORVASC [Concomitant]
  4. ATACAND [Concomitant]
  5. TYLENOL (CAPLET) [Concomitant]
  6. DITROPAN XL [Concomitant]

REACTIONS (6)
  - ASTHENIA [None]
  - FEELING ABNORMAL [None]
  - FEELING JITTERY [None]
  - INJECTION SITE HAEMORRHAGE [None]
  - NAUSEA [None]
  - WEIGHT DECREASED [None]
